FAERS Safety Report 15258406 (Version 1)
Quarter: 2018Q3

REPORT INFORMATION
  Report Type: Report from Study
  Country: US (occurrence: US)
  Receive Date: 20180809
  Receipt Date: 20180809
  Transmission Date: 20181010
  Serious: No
  Sender: FDA-Public Use
  Company Number: US-ROCHE-2165861

PATIENT
  Sex: Female

DRUGS (1)
  1. OCREVUS [Suspect]
     Active Substance: OCRELIZUMAB
     Indication: RELAPSING MULTIPLE SCLEROSIS
     Dosage: ONGOING:NO
     Route: 065
     Dates: start: 201707

REACTIONS (3)
  - Sinusitis [Recovering/Resolving]
  - Nasopharyngitis [Recovered/Resolved]
  - Malaise [Recovered/Resolved]
